FAERS Safety Report 7062466 (Version 1)
Quarter: 2020Q3

REPORT INFORMATION
  Report Type: Report from Study
  Country: US (occurrence: US)
  Receive Date: 20090724
  Receipt Date: 20090724
  Transmission Date: 20201105
  Serious: Yes (Hospitalization)
  Sender: FDA-Public Use
  Company Number: US-ROCHE-643719

PATIENT
  Age: 58 Year
  Sex: Female
  Weight: 79.3 kg

DRUGS (1)
  1. IBANDRONIC ACID. [Suspect]
     Active Substance: IBANDRONIC ACID
     Dosage: TOTAL DOSE ADMINISTERED: 2550 MG, LAST DOSE ADMINISTERED: 12 JUNE 2009, EVERY DAY FOR 3 YEARS
     Route: 048
     Dates: start: 20090423, end: 20090612

REACTIONS (1)
  - Cholecystitis [Recovering/Resolving]

NARRATIVE: CASE EVENT DATE: 20090702
